FAERS Safety Report 22288346 (Version 1)
Quarter: 2023Q2

REPORT INFORMATION
  Report Type: Spontaneous
  Country: BE (occurrence: None)
  Receive Date: 20230505
  Receipt Date: 20230505
  Transmission Date: 20230721
  Serious: Yes (Other)
  Sender: FDA-Public Use
  Company Number: 2023A094674

PATIENT
  Age: 6 Year
  Sex: Female

DRUGS (1)
  1. OMEPRAZOLE [Suspect]
     Active Substance: OMEPRAZOLE
     Indication: Gastric disorder

REACTIONS (3)
  - Tongue oedema [Recovered/Resolved]
  - Salivary hypersecretion [Recovered/Resolved]
  - Administration related reaction [Recovered/Resolved]

NARRATIVE: CASE EVENT DATE: 20230207
